FAERS Safety Report 10339669 (Version 2)
Quarter: 2014Q3

REPORT INFORMATION
  Report Type: Spontaneous
  Country: BR (occurrence: BR)
  Receive Date: 20140724
  Receipt Date: 20140724
  Transmission Date: 20150326
  Serious: Yes (Other)
  Sender: FDA-Public Use
  Company Number: PHHY2013BR030870

PATIENT
  Age: 9 Year
  Sex: Male
  Weight: 38 kg

DRUGS (3)
  1. NYOLOL 0.1% GEL [Suspect]
     Active Substance: TIMOLOL MALEATE
     Indication: GLAUCOMA
     Dosage: UNK UKN, BID
     Route: 047
  2. TRAVATAN [Concomitant]
     Active Substance: TRAVOPROST
     Indication: DEVELOPMENTAL GLAUCOMA
     Dosage: UNK UKN, QHS (ONCE A DAY BEFORE SLEEP)
     Route: 047
  3. DORZOLAMIDE [Concomitant]
     Active Substance: DORZOLAMIDE
     Indication: DEVELOPMENTAL GLAUCOMA
     Dosage: UNK UKN, BID (TWICE DAILY)
     Route: 047

REACTIONS (4)
  - Feeling abnormal [Not Recovered/Not Resolved]
  - Visual impairment [Unknown]
  - Intraocular pressure increased [Not Recovered/Not Resolved]
  - Vision blurred [Not Recovered/Not Resolved]
